FAERS Safety Report 4339837-6 (Version None)
Quarter: 2004Q2

REPORT INFORMATION
  Report Type: 
  Country: None (occurrence: None)
  Receive Date: 20040412
  Receipt Date: 20040405
  Transmission Date: 20050107
  Serious: Yes (Hospitalization)
  Sender: FDA-Public Use
  Company Number: 2004-01-0110

PATIENT
  Age: 53 Year
  Sex: Male
  Weight: 84 kg

DRUGS (7)
  1. VIRAFERONPEG [Suspect]
     Indication: HEPATITIS C
     Dosage: 125UG QW SUBCUTANEOUS
     Route: 058
     Dates: start: 20030401
  2. REBETOL [Suspect]
     Indication: HEPATITIS C
     Dosage: ORAL
     Route: 048
     Dates: start: 20030401
  3. CRIXIVAN [Suspect]
     Indication: HIV INFECTION
     Dosage: ORAL
     Route: 048
  4. NOVIR TABLETS [Suspect]
     Indication: HIV INFECTION
     Dosage: 100 MG QD
  5. EPIVIR [Suspect]
     Indication: HIV INFECTION
     Dosage: 300 MG QD ORAL
     Route: 048
  6. ZIAGEN [Suspect]
     Indication: HIV INFECTION
     Dosage: 300 MG QD
  7. VIREAD [Suspect]
     Indication: HIV INFECTION
     Dosage: 250 MG QD

REACTIONS (3)
  - OSTEOARTHRITIS [None]
  - TENDONITIS [None]
  - TENOSYNOVITIS [None]
